FAERS Safety Report 9257069 (Version 2)
Quarter: 2013Q2

REPORT INFORMATION
  Report Type: Report from Study
  Country: US (occurrence: US)
  Receive Date: 20130426
  Receipt Date: 20130522
  Transmission Date: 20140414
  Serious: Yes (Hospitalization, Other)
  Sender: FDA-Public Use
  Company Number: US-JNJFOC-20130409090

PATIENT
  Sex: Male
  Weight: 148.33 kg

DRUGS (30)
  1. SIMPONI [Suspect]
     Indication: RHEUMATOID ARTHRITIS
     Dates: start: 200912, end: 2010
  2. HUMIRA [Suspect]
     Indication: RHEUMATOID ARTHRITIS
     Dates: start: 2005, end: 2009
  3. METHOTREXATE [Concomitant]
  4. LIDODERM [Concomitant]
     Indication: RHEUMATOID ARTHRITIS
  5. ADVAIR [Concomitant]
  6. NASONEX [Concomitant]
  7. ZYRTEC [Concomitant]
  8. SINGULAIR [Concomitant]
  9. SPIRIVA [Concomitant]
  10. NEXIUM [Concomitant]
  11. XOPENEX [Concomitant]
     Route: 055
  12. MUCINEX [Concomitant]
  13. MAGNESIUM CHLORIDE [Concomitant]
  14. FERROUS SULFATE [Concomitant]
  15. MORPHINE SULFATE [Concomitant]
  16. LEXAPRO [Concomitant]
  17. MECLIZINE [Concomitant]
  18. PERCOCET [Concomitant]
  19. VALIUM [Concomitant]
  20. ATIVAN [Concomitant]
  21. FOLIC ACID [Concomitant]
  22. SULFASALAZINE [Concomitant]
  23. NEURONTIN [Concomitant]
  24. BYSTOLIC [Concomitant]
  25. SIMVASTATIN [Concomitant]
  26. LISINOPRIL [Concomitant]
  27. NITROQUICK [Concomitant]
  28. CALCITRIOL [Concomitant]
  29. VITAMINS NOS [Concomitant]
  30. VITAMIN D [Concomitant]

REACTIONS (12)
  - Respiratory disorder [Unknown]
  - Thrombosis [Recovered/Resolved]
  - Coronary artery occlusion [Recovered/Resolved]
  - Hypoaesthesia [Recovered/Resolved]
  - Dysstasia [Recovered/Resolved]
  - Respiratory arrest [Recovered/Resolved]
  - Renal failure acute [Unknown]
  - Pneumonia [Recovered/Resolved]
  - Blister [Unknown]
  - Memory impairment [Unknown]
  - Skin ulcer [Unknown]
  - Drug effect decreased [Unknown]
